FAERS Safety Report 7704711-1 (Version None)
Quarter: 2011Q3

REPORT INFORMATION
  Report Type: 
  Country: None (occurrence: None)
  Receive Date: 20110823
  Receipt Date: 20110812
  Transmission Date: 20111222
  Serious: Yes (Hospitalization)
  Sender: FDA-Public Use
  Company Number: US-JNJFOC-20110105596

PATIENT
  Sex: Female
  Weight: 76.2 kg

DRUGS (7)
  1. NARCOTIC ANALGESICS, NOS [Concomitant]
     Indication: CROHN'S DISEASE
  2. INFLIXIMAB, RECOMBINANT [Suspect]
     Indication: CROHN'S DISEASE
     Route: 042
     Dates: start: 20110111
  3. INFLIXIMAB, RECOMBINANT [Suspect]
     Dosage: TOTAL 6 DOSES
     Route: 042
     Dates: start: 20100419, end: 20101118
  4. FOLIC ACID [Concomitant]
     Indication: CROHN'S DISEASE
  5. CANASA [Concomitant]
     Indication: CROHN'S DISEASE
  6. INFLIXIMAB, RECOMBINANT [Suspect]
     Dosage: TOTAL 35 DOSES
     Route: 042
     Dates: start: 20050829, end: 20100308
  7. MESALAMINE [Concomitant]
     Indication: CROHN'S DISEASE

REACTIONS (2)
  - CROHN'S DISEASE [None]
  - LUNG NEOPLASM [None]
